FAERS Safety Report 6726536-6 (Version None)
Quarter: 2010Q2

REPORT INFORMATION
  Report Type: 
  Country: None (occurrence: None)
  Receive Date: 20100514
  Receipt Date: 20100121
  Transmission Date: 20101027
  Serious: Yes (Hospitalization, Other)
  Sender: FDA-Public Use
  Company Number: US-BRISTOL-MYERS SQUIBB COMPANY-14923536

PATIENT
  Age: 39 Year
  Sex: Female

DRUGS (6)
  1. IXEMPRA KIT [Suspect]
     Indication: BREAST CANCER METASTATIC
     Route: 040
     Dates: start: 20090609
  2. HERCEPTIN [Suspect]
     Indication: BREAST CANCER METASTATIC
  3. ZANTAC [Concomitant]
  4. ALOXI [Concomitant]
  5. BENADRYL [Concomitant]
  6. DECADRON [Concomitant]

REACTIONS (4)
  - BACK PAIN [None]
  - DIZZINESS [None]
  - DYSPNOEA [None]
  - ERYTHEMA [None]
